FAERS Safety Report 7919950-4 (Version None)
Quarter: 2011Q4

REPORT INFORMATION
  Report Type: 
  Country: None (occurrence: None)
  Receive Date: 20111117
  Receipt Date: 20111114
  Transmission Date: 20120403
  Serious: Yes (Hospitalization)
  Sender: FDA-Public Use
  Company Number: FR-SANOFI-AVENTIS-2010SA069751

PATIENT
  Age: 79 Year
  Sex: Female

DRUGS (6)
  1. RAMIPRIL [Concomitant]
     Route: 048
  2. LASIX [Suspect]
     Route: 048
     Dates: end: 20100625
  3. LANSOYL [Concomitant]
     Route: 048
  4. IMOVANE [Concomitant]
     Route: 048
     Dates: start: 20100601
  5. ASPIRIN [Suspect]
     Route: 048
     Dates: end: 20100624
  6. DIGOXIN [Suspect]
     Route: 048
     Dates: end: 20100625

REACTIONS (3)
  - DEHYDRATION [None]
  - RENAL FAILURE [None]
  - FAECAL VOMITING [None]
